FAERS Safety Report 24049138 (Version 5)
Quarter: 2024Q3

REPORT INFORMATION
  Report Type: Report from Study
  Country: US (occurrence: US)
  Receive Date: 20240704
  Receipt Date: 20240904
  Transmission Date: 20241016
  Serious: Yes (Other)
  Sender: GILEAD
  Company Number: US-GILEAD-2024-0679255

PATIENT
  Age: 39 Year
  Sex: Female

DRUGS (6)
  1. AMBRISENTAN [Suspect]
     Active Substance: AMBRISENTAN
     Indication: Pulmonary arterial hypertension
     Dosage: 10 MG, QD
     Route: 065
     Dates: start: 20210105
  2. AMBRISENTAN [Suspect]
     Active Substance: AMBRISENTAN
     Indication: Pulmonary hypertension
     Dosage: 10 MG, QD
     Route: 065
     Dates: start: 20210527
  3. REMODULIN [Concomitant]
     Active Substance: TREPROSTINIL
     Dosage: UNK
  4. ADEMPAS [Concomitant]
     Active Substance: RIOCIGUAT
     Dosage: UNK
  5. ADCIRCA [Concomitant]
     Active Substance: TADALAFIL
  6. XARELTO [Concomitant]
     Active Substance: RIVAROXABAN

REACTIONS (17)
  - Central venous catheterisation [Unknown]
  - Paracentesis [Unknown]
  - Wheezing [Unknown]
  - Nasoendoscopy [Unknown]
  - Application site erosion [Unknown]
  - Catheter site erythema [Unknown]
  - Catheter site vesicles [Unknown]
  - Abdominal distension [Not Recovered/Not Resolved]
  - Oedema peripheral [Not Recovered/Not Resolved]
  - Dyspnoea exertional [Not Recovered/Not Resolved]
  - Catheter site irritation [Unknown]
  - Catheter site rash [Unknown]
  - Catheter site discharge [Unknown]
  - Hyperhidrosis [Unknown]
  - Catheter site pruritus [Unknown]
  - Blood potassium decreased [Unknown]
  - Haemoglobin increased [Unknown]

NARRATIVE: CASE EVENT DATE: 20240628
